FAERS Safety Report 23155215 (Version 1)
Quarter: 2023Q4

REPORT INFORMATION
  Report Type: Spontaneous
  Country: US (occurrence: US)
  Receive Date: 20231107
  Receipt Date: 20231107
  Transmission Date: 20240109
  Serious: No
  Sender: FDA-Public Use
  Company Number: US-SA-SAC20231030001214

PATIENT
  Age: 46 Year
  Sex: Female
  Weight: 102.5 kg

DRUGS (2)
  1. DUPIXENT [Suspect]
     Active Substance: DUPILUMAB
     Indication: Dermatitis atopic
     Dosage: 300 MG, QOW
     Route: 058
  2. GEMTESA [Concomitant]
     Active Substance: VIBEGRON

REACTIONS (3)
  - Eye irritation [Recovered/Resolved]
  - Skin swelling [Unknown]
  - Therapeutic response shortened [Unknown]
